FAERS Safety Report 5208769-3 (Version None)
Quarter: 2007Q1

REPORT INFORMATION
  Report Type: 
  Country: None (occurrence: None)
  Receive Date: 20070111
  Receipt Date: 20070111
  Transmission Date: 20070707
  Serious: Yes (Hospitalization)
  Sender: FDA-Public Use
  Company Number: None

PATIENT
  Age: 72 Year
  Sex: Male
  Weight: 131.9967 kg

DRUGS (14)
  1. WARFARIN SODIUM [Suspect]
     Indication: ATRIAL FIBRILLATION
     Dosage: 5 MG T, T, S, S;  7.5 G M,W, F  PO
     Route: 048
     Dates: start: 20050201, end: 20061204
  2. ASPIRIN [Suspect]
     Indication: ATRIAL FIBRILLATION
     Dosage: 324 MG DAILY PO
     Route: 048
     Dates: start: 20060901, end: 20061204
  3. ASPIRIN [Suspect]
     Indication: CORONARY ARTERIAL STENT INSERTION
     Dosage: 324 MG DAILY PO
     Route: 048
     Dates: start: 20060901, end: 20061204
  4. ASPIRIN [Suspect]
     Indication: PERCUTANEOUS CORONARY INTERVENTION
     Dosage: 324 MG DAILY PO
     Route: 048
     Dates: start: 20060901, end: 20061204
  5. TIMOLOL MALEATE [Concomitant]
  6. TRAVOPROST [Concomitant]
  7. CLOPIDOGREL [Concomitant]
  8. BENAZEPRIL HYDROCHLORIDE [Concomitant]
  9. FELODIPINE [Concomitant]
  10. GLIPIZIDE [Concomitant]
  11. METOPROLOL SUCCINATE [Concomitant]
  12. ROSIGLITAZONE [Concomitant]
  13. SIMVASTATIN [Concomitant]
  14. HYDROCODONE BITARTRATE [Concomitant]

REACTIONS (7)
  - CHEST PAIN [None]
  - DYSPNOEA EXERTIONAL [None]
  - GASTRIC HAEMORRHAGE [None]
  - HAEMOGLOBIN DECREASED [None]
  - MELAENA [None]
  - NAUSEA [None]
  - OCCULT BLOOD POSITIVE [None]
